FAERS Safety Report 6673003-4 (Version None)
Quarter: 2010Q2

REPORT INFORMATION
  Report Type: 
  Country: None (occurrence: None)
  Receive Date: 20100408
  Receipt Date: 20100329
  Transmission Date: 20101027
  Serious: Yes (Life-Threatening)
  Sender: FDA-Public Use
  Company Number: B0643665A

PATIENT
  Sex: Male

DRUGS (9)
  1. VENTOLIN [Suspect]
     Indication: CHRONIC OBSTRUCTIVE PULMONARY DISEASE
     Route: 055
  2. CISPLATIN [Suspect]
     Dosage: 70MGM2 CYCLIC
     Route: 042
     Dates: start: 20090715, end: 20091019
  3. ALIMTA [Suspect]
     Dosage: 500MGM2 CYCLIC
     Route: 042
     Dates: start: 20090715, end: 20091019
  4. FORLAX [Suspect]
     Indication: DRUG USE FOR UNKNOWN INDICATION
     Dosage: 1SAC TWICE PER DAY
     Route: 048
  5. TOPALGIC ( FRANCE ) [Suspect]
     Indication: DRUG USE FOR UNKNOWN INDICATION
     Dosage: 100MG TWICE PER DAY
     Route: 048
  6. LEXOMIL [Suspect]
     Indication: DRUG USE FOR UNKNOWN INDICATION
     Dosage: 3MG THREE TIMES PER DAY
     Route: 048
  7. ATARAX [Suspect]
     Indication: DRUG USE FOR UNKNOWN INDICATION
     Dosage: 25MG PER DAY
     Route: 048
  8. ATROVENT [Suspect]
     Indication: CHRONIC OBSTRUCTIVE PULMONARY DISEASE
     Route: 055
  9. PULMICORT [Suspect]
     Indication: CHRONIC OBSTRUCTIVE PULMONARY DISEASE
     Route: 055

REACTIONS (6)
  - COUGH [None]
  - DYSPNOEA [None]
  - LUNG DISORDER [None]
  - PYREXIA [None]
  - RADIATION PNEUMONITIS [None]
  - RESPIRATORY DISTRESS [None]
